FAERS Safety Report 16737276 (Version 1)
Quarter: 2019Q3

REPORT INFORMATION
  Report Type: Spontaneous
  Country: GB (occurrence: GB)
  Receive Date: 20190823
  Receipt Date: 20190823
  Transmission Date: 20191005
  Serious: Yes (Hospitalization)
  Sender: FDA-Public Use
  Company Number: GB-TEVA-2019-GB-1095675

PATIENT
  Age: 83 Year
  Sex: Female

DRUGS (3)
  1. CANDESARTAN. [Concomitant]
     Active Substance: CANDESARTAN
  2. AMLODIPINE [Concomitant]
     Active Substance: AMLODIPINE BESYLATE
  3. BISOPROLOL [Suspect]
     Active Substance: BISOPROLOL
     Dosage: 1.25MG
     Route: 048
     Dates: end: 20190720

REACTIONS (10)
  - Atrial fibrillation [Unknown]
  - Cold sweat [Unknown]
  - Pallor [Unknown]
  - Chest pain [Unknown]
  - Bradycardia [Recovered/Resolved]
  - Nausea [Unknown]
  - Pulse absent [Unknown]
  - Bradyarrhythmia [Unknown]
  - Loss of consciousness [Recovered/Resolved]
  - Pulmonary embolism [Unknown]

NARRATIVE: CASE EVENT DATE: 20190720
